FAERS Safety Report 6682473-7 (Version None)
Quarter: 2010Q2

REPORT INFORMATION
  Report Type: 
  Country: None (occurrence: None)
  Receive Date: 20100415
  Receipt Date: 20100405
  Transmission Date: 20101027
  Serious: Yes (Hospitalization, Other)
  Sender: FDA-Public Use
  Company Number: PHEH2009US14236

PATIENT
  Sex: Female

DRUGS (2)
  1. GLEEVEC [Suspect]
     Indication: CHRONIC MYELOID LEUKAEMIA
     Dosage: 400 MG, QD
     Route: 048
  2. DETROL [Concomitant]

REACTIONS (5)
  - CONFUSIONAL STATE [None]
  - FAECES DISCOLOURED [None]
  - GASTROINTESTINAL INFECTION [None]
  - PERIORBITAL OEDEMA [None]
  - SWELLING FACE [None]
